FAERS Safety Report 4518361-1 (Version None)
Quarter: 2004Q4

REPORT INFORMATION
  Report Type: 
  Country: None (occurrence: None)
  Receive Date: 20041202
  Receipt Date: 20041119
  Transmission Date: 20050328
  Serious: Yes (Hospitalization)
  Sender: FDA-Public Use
  Company Number: 2004241303US

PATIENT
  Age: 43 Year
  Sex: Female
  Weight: 69 kg

DRUGS (8)
  1. IRINOTECAN HYDROCHLORIDE SOLUTION, STERILE (IRINOTECAN HYDROCHLORIDE) [Suspect]
     Indication: GLIOBLASTOMA MULTIFORME
     Dosage: 183 MG (WEEKLY), INTRAVENOUS
     Route: 042
     Dates: start: 20041013
  2. THALIDOMIDE (THALIDOMIDE) [Suspect]
     Indication: GLIOBLASTOMA MULTIFORME
     Dosage: 400 MG (DAILY), ORAL
     Route: 048
     Dates: start: 20041013
  3. LEVETIRACETAM [Concomitant]
  4. PAROXETINE HCL [Concomitant]
  5. SALBUTAMOL (SALBUTAMOL) [Concomitant]
  6. SALMETEROL XINAFOATE (SALMETEROL XINAFOATE) [Concomitant]
  7. DEXAMETHASONE [Concomitant]
  8. WARFARIN SODIUM [Concomitant]

REACTIONS (5)
  - BODY TEMPERATURE INCREASED [None]
  - LUNG INFILTRATION [None]
  - NEUTROPHIL COUNT DECREASED [None]
  - PNEUMONIA [None]
  - PNEUMONITIS [None]
